FAERS Safety Report 8290111-5 (Version None)
Quarter: 2012Q2

REPORT INFORMATION
  Report Type: 
  Country: None (occurrence: None)
  Receive Date: 20120417
  Receipt Date: 20120403
  Transmission Date: 20120825
  Serious: Yes (Hospitalization)
  Sender: FDA-Public Use
  Company Number: PHHO2009IT02849

PATIENT
  Sex: Male
  Weight: 71 kg

DRUGS (6)
  1. CATAPRES [Concomitant]
  2. TACROLIMUS [Suspect]
     Indication: LIVER TRANSPLANT
     Dosage: 2 MG, UNK
     Route: 048
     Dates: start: 20080922
  3. HEPSERA [Concomitant]
  4. EVEROLIMUS [Suspect]
     Indication: LIVER TRANSPLANT
     Dosage: UNK
     Route: 048
     Dates: start: 20081013, end: 20090215
  5. OMEPRAZOLE [Concomitant]
  6. HEPATITIS B IMMUNE GLOBULIN (HUMAN) [Concomitant]

REACTIONS (3)
  - ABDOMINAL PAIN [None]
  - ABDOMINAL HERNIA [None]
  - CHEMICAL PERITONITIS [None]
